FAERS Safety Report 9476844 (Version 1)
Quarter: 2013Q3

REPORT INFORMATION
  Report Type: Spontaneous
  Country: US (occurrence: US)
  Receive Date: 20130826
  Receipt Date: 20130826
  Transmission Date: 20140515
  Serious: No
  Sender: FDA-Public Use
  Company Number: US-TARO-2013P1005392

PATIENT
  Age: 67 Year
  Sex: Male
  Weight: 76.2 kg

DRUGS (6)
  1. CLOBETASOL PROPIONATE CREAM [Suspect]
     Indication: PSORIASIS
     Route: 061
     Dates: start: 2009
  2. ATORVASTATIN [Concomitant]
  3. RED YEAST [Concomitant]
  4. METFORMIN [Concomitant]
  5. AMLODIPINE [Concomitant]
  6. DOXAZOSIN [Concomitant]

REACTIONS (7)
  - Skin atrophy [Not Recovered/Not Resolved]
  - Acrochordon [Recovered/Resolved]
  - Platelet count decreased [Unknown]
  - Prostatomegaly [Unknown]
  - Laceration [Unknown]
  - Contusion [Unknown]
  - Impaired healing [Not Recovered/Not Resolved]
